FAERS Safety Report 16500855 (Version 1)
Quarter: 2019Q3

REPORT INFORMATION
  Report Type: Report from Study
  Country: FI (occurrence: FI)
  Receive Date: 20190701
  Receipt Date: 20190701
  Transmission Date: 20191004
  Serious: Yes (Other)
  Sender: FDA-Public Use
  Company Number: FI-PFIZER INC-2019272385

PATIENT
  Age: 62 Year
  Sex: Female

DRUGS (7)
  1. HYALURONIDASE OYSK/TRASTUZUMAB [Suspect]
     Active Substance: TRASTUZUMAB AND HYALURONIDASE-OYSK
     Indication: HER-2 POSITIVE BREAST CANCER
     Route: 058
     Dates: start: 201706, end: 201808
  2. TAMOFEN [Concomitant]
     Active Substance: TAMOXIFEN CITRATE
     Indication: HER-2 POSITIVE BREAST CANCER
     Route: 065
     Dates: start: 20170101
  3. EPIRUBICIN [Suspect]
     Active Substance: EPIRUBICIN
     Indication: HER-2 POSITIVE BREAST CANCER
     Dosage: THREE CYCLES
     Route: 065
     Dates: start: 2017, end: 2017
  4. FLUOROURACIL. [Suspect]
     Active Substance: FLUOROURACIL
     Indication: HER-2 POSITIVE BREAST CANCER
     Dosage: THREE CYCLES
     Route: 065
     Dates: start: 2017, end: 2017
  5. DOCETAXEL. [Suspect]
     Active Substance: DOCETAXEL
     Indication: HER-2 POSITIVE BREAST CANCER
     Dosage: THREE CYCLES
     Route: 065
     Dates: start: 201706, end: 2017
  6. LETROZOLE. [Suspect]
     Active Substance: LETROZOLE
     Indication: HER-2 POSITIVE BREAST CANCER
     Route: 065
     Dates: start: 201706, end: 2017
  7. CYCLOPHOSPHAMIDE. [Suspect]
     Active Substance: CYCLOPHOSPHAMIDE
     Indication: HER-2 POSITIVE BREAST CANCER
     Dosage: THREE CYCLES
     Route: 065
     Dates: start: 2017, end: 2017

REACTIONS (15)
  - Cardiac failure [Not Recovered/Not Resolved]
  - Onychomadesis [Not Recovered/Not Resolved]
  - Arthropathy [Recovering/Resolving]
  - Hypersensitivity [Not Recovered/Not Resolved]
  - Depression [Unknown]
  - Lacrimation increased [Not Recovered/Not Resolved]
  - Taste disorder [Not Recovered/Not Resolved]
  - Sensory loss [Not Recovered/Not Resolved]
  - Madarosis [Not Recovered/Not Resolved]
  - Neuropathy peripheral [Not Recovered/Not Resolved]
  - Eye irritation [Not Recovered/Not Resolved]
  - Cutaneous symptom [Not Recovered/Not Resolved]
  - Liver function test increased [Not Recovered/Not Resolved]
  - Skin irritation [Not Recovered/Not Resolved]
  - Alopecia [Recovered/Resolved]

NARRATIVE: CASE EVENT DATE: 2017
